FAERS Safety Report 14178736 (Version 2)
Quarter: 2017Q4

REPORT INFORMATION
  Report Type: Spontaneous
  Country: AU (occurrence: AU)
  Receive Date: 20171110
  Receipt Date: 20171130
  Transmission Date: 20180321
  Serious: Yes (Death, Other)
  Sender: FDA-Public Use
  Company Number: AU-REGENERON PHARMACEUTICALS, INC.-2017-26216

PATIENT

DRUGS (29)
  1. EYLEA [Suspect]
     Active Substance: AFLIBERCEPT
     Dosage: #2 RIGHT EYE
     Route: 031
     Dates: start: 20141228, end: 20141228
  2. EYLEA [Suspect]
     Active Substance: AFLIBERCEPT
     Dosage: #8 RIGHT EYE
     Route: 031
     Dates: start: 20151222, end: 20151222
  3. LANTUS [Concomitant]
     Active Substance: INSULIN GLARGINE
     Indication: DIABETES MELLITUS
     Dosage: 20 U, UNK
  4. EYLEA [Suspect]
     Active Substance: AFLIBERCEPT
     Dosage: #2 LEFT EYE
     Route: 031
     Dates: start: 20151229, end: 20151229
  5. EYLEA [Suspect]
     Active Substance: AFLIBERCEPT
     Dosage: #3 LEFT EYE
     Route: 031
     Dates: start: 20160113, end: 20160113
  6. EYLEA [Suspect]
     Active Substance: AFLIBERCEPT
     Dosage: #9 RIGHT EYE
     Route: 031
     Dates: start: 20160226, end: 20160226
  7. EYLEA [Suspect]
     Active Substance: AFLIBERCEPT
     Dosage: #14 RIGHT EYE
     Route: 031
     Dates: start: 20161130, end: 20161130
  8. DUOLIN                             /01033501/ [Concomitant]
     Active Substance: ALBUTEROL\IPRATROPIUM BROMIDE
     Indication: PRODUCT USED FOR UNKNOWN INDICATION
  9. EYLEA [Suspect]
     Active Substance: AFLIBERCEPT
     Dosage: #10 RIGHT EYE
     Route: 031
     Dates: start: 20160427, end: 20160427
  10. EYLEA [Suspect]
     Active Substance: AFLIBERCEPT
     Dosage: #17 RIGHT EYE
     Route: 031
     Dates: start: 20170614, end: 20170614
  11. AZOPT [Concomitant]
     Active Substance: BRINZOLAMIDE
     Indication: PRODUCT USED FOR UNKNOWN INDICATION
     Dosage: UNK UNK, QD
  12. TIMOLOL. [Concomitant]
     Active Substance: TIMOLOL
     Indication: PRODUCT USED FOR UNKNOWN INDICATION
     Dosage: BOTH EYES
  13. TEMAZEPAM. [Concomitant]
     Active Substance: TEMAZEPAM
     Indication: PRODUCT USED FOR UNKNOWN INDICATION
     Dosage: 1-2 TABLETS AT NIGHT
  14. EYLEA [Suspect]
     Active Substance: AFLIBERCEPT
     Indication: AGE-RELATED MACULAR DEGENERATION
     Dosage: #1 RIGHT EYE
     Route: 031
     Dates: start: 20141126, end: 20141126
  15. EYLEA [Suspect]
     Active Substance: AFLIBERCEPT
     Dosage: #11 RIGHT EYE
     Route: 031
     Dates: start: 20160617, end: 20160617
  16. EYLEA [Suspect]
     Active Substance: AFLIBERCEPT
     Dosage: #13 RIGHT EYE
     Route: 031
     Dates: start: 20160829, end: 20160829
  17. EYLEA [Suspect]
     Active Substance: AFLIBERCEPT
     Dosage: #15 RIGHT EYE
     Route: 031
     Dates: start: 20170125, end: 20170125
  18. NOVORAPID [Concomitant]
     Active Substance: INSULIN ASPART
     Indication: DIABETES MELLITUS
     Dosage: 8-10 UNITS MANE, 3-5 LUNCHTIME, 17 DINNERTIME
  19. EYLEA [Suspect]
     Active Substance: AFLIBERCEPT
     Dosage: #7 RIGHT EYE
     Route: 031
     Dates: start: 20151028, end: 20151028
  20. EYLEA [Suspect]
     Active Substance: AFLIBERCEPT
     Dosage: #1 LEFT EYE
     Route: 031
     Dates: start: 20151111, end: 20151111
  21. EYLEA [Suspect]
     Active Substance: AFLIBERCEPT
     Dosage: #12 RIGHT EYE
     Route: 031
     Dates: start: 20160810, end: 20160810
  22. TRAMADOL. [Concomitant]
     Active Substance: TRAMADOL
     Indication: PRODUCT USED FOR UNKNOWN INDICATION
     Dosage: UNK UNK, PRN
  23. EYLEA [Suspect]
     Active Substance: AFLIBERCEPT
     Dosage: #3 RIGHT EYE
     Route: 031
     Dates: start: 20150128, end: 20150128
  24. EYLEA [Suspect]
     Active Substance: AFLIBERCEPT
     Dosage: #16 RIGHT EYE
     Route: 031
     Dates: start: 20170411, end: 20170411
  25. ONDANSETRON [Concomitant]
     Active Substance: ONDANSETRON
     Indication: PRODUCT USED FOR UNKNOWN INDICATION
     Dosage: UNK UNK, PRN
  26. EYLEA [Suspect]
     Active Substance: AFLIBERCEPT
     Dosage: #4 RIGHT EYE
     Route: 031
     Dates: start: 20150325, end: 20150325
  27. EYLEA [Suspect]
     Active Substance: AFLIBERCEPT
     Dosage: #5 RIGHT EYE
     Route: 031
     Dates: start: 20150527, end: 20150527
  28. EYLEA [Suspect]
     Active Substance: AFLIBERCEPT
     Dosage: #6 RIGHT EYE
     Route: 031
     Dates: start: 20150826, end: 20150826
  29. OVESTIN [Concomitant]
     Active Substance: ESTRIOL
     Indication: PRODUCT USED FOR UNKNOWN INDICATION

REACTIONS (1)
  - Pancreatic carcinoma metastatic [Fatal]
